FAERS Safety Report 8050161-0 (Version None)
Quarter: 2012Q1

REPORT INFORMATION
  Report Type: 
  Country: None (occurrence: None)
  Receive Date: 20120117
  Receipt Date: 20120109
  Transmission Date: 20120608
  Serious: Yes (Death)
  Sender: FDA-Public Use
  Company Number: FR-MERCK-1201FRA00025

PATIENT
  Age: 66 Year
  Sex: Female

DRUGS (6)
  1. METFORMIN [Concomitant]
     Indication: TYPE 2 DIABETES MELLITUS
     Route: 048
     Dates: start: 20100624, end: 20101224
  2. ACARBOSE [Concomitant]
     Indication: TYPE 2 DIABETES MELLITUS
     Route: 048
     Dates: start: 20110910, end: 20120107
  3. JANUVIA [Suspect]
     Route: 048
     Dates: start: 20110910, end: 20120107
  4. JANUVIA [Suspect]
     Indication: TYPE 2 DIABETES MELLITUS
     Route: 048
     Dates: start: 20100624, end: 20110726
  5. METFORMIN [Concomitant]
     Route: 048
     Dates: start: 20101225
  6. JANUMET [Concomitant]
     Indication: TYPE 2 DIABETES MELLITUS
     Route: 048
     Dates: start: 20110727, end: 20110909

REACTIONS (3)
  - APPENDICITIS [None]
  - INFECTIOUS PERITONITIS [None]
  - HYPOGLYCAEMIA [None]
